FAERS Safety Report 10203767 (Version 1)
Quarter: 2014Q2

REPORT INFORMATION
  Report Type: Report from Study
  Country: JP (occurrence: JP)
  Receive Date: 20140529
  Receipt Date: 20140529
  Transmission Date: 20141212
  Serious: Yes (Death, Hospitalization)
  Sender: FDA-Public Use
  Company Number: JP-ABBVIE-14P-087-1241740-00

PATIENT
  Age: 69 Year
  Sex: Female
  Weight: 30 kg

DRUGS (6)
  1. KLARICID TABLET 200MG [Suspect]
     Indication: ATYPICAL MYCOBACTERIAL INFECTION
     Dates: start: 20110329
  2. KLARICID TABLET 200MG [Suspect]
     Route: 048
     Dates: start: 20080822, end: 20090831
  3. ETHAMBUTOL HYDROCHLORIDE [Concomitant]
     Indication: ATYPICAL MYCOBACTERIAL INFECTION
     Dates: start: 20080822, end: 20090831
  4. ETHAMBUTOL HYDROCHLORIDE [Concomitant]
     Dates: start: 20110329
  5. RIFAMPICIN [Concomitant]
     Indication: ATYPICAL MYCOBACTERIAL INFECTION
     Dates: start: 20080822, end: 20090831
  6. RIFAMPICIN [Concomitant]
     Dates: start: 20110329

REACTIONS (3)
  - Cardiac failure acute [Fatal]
  - Pneumonia bacterial [Unknown]
  - Cardio-respiratory arrest [None]
